FAERS Safety Report 9207633 (Version 1)
Quarter: 2013Q1

REPORT INFORMATION
  Report Type: Spontaneous
  Country: US (occurrence: None)
  Receive Date: 20120817
  Receipt Date: 20120817
  Transmission Date: 20140127
  Serious: Yes (Hospitalization, Other)
  Sender: FDA-Public Use
  Company Number: ADR-2011-11801

PATIENT
  Sex: Female

DRUGS (2)
  1. LIORESAL [Suspect]
     Indication: MUSCLE SPASTICITY
     Route: 037
  2. LIORESAL [Suspect]
     Indication: CEREBRAL PALSY
     Route: 037

REACTIONS (4)
  - Drug withdrawal syndrome [None]
  - Pyrexia [None]
  - Muscle spasticity [None]
  - Discomfort [None]
